FAERS Safety Report 24183624 (Version 3)
Quarter: 2024Q3

REPORT INFORMATION
  Report Type: Report from Study
  Country: US (occurrence: US)
  Receive Date: 20240807
  Receipt Date: 20240909
  Transmission Date: 20241016
  Serious: Yes (Other)
  Sender: JOHNSON AND JOHNSON
  Company Number: US-JNJFOC-20240725659

PATIENT
  Age: 67 Year
  Sex: Male

DRUGS (5)
  1. TALVEY [Suspect]
     Active Substance: TALQUETAMAB-TGVS
     Indication: Plasma cell myeloma
     Route: 058
     Dates: start: 20240613
  2. TALVEY [Suspect]
     Active Substance: TALQUETAMAB-TGVS
     Route: 058
  3. BENADRYL [Concomitant]
     Active Substance: DIPHENHYDRAMINE HYDROCHLORIDE
     Indication: Premedication
  4. DEXAMETHASONE [Concomitant]
     Active Substance: DEXAMETHASONE
     Indication: Plasma cell myeloma
  5. TYLENOL [Concomitant]
     Active Substance: ACETAMINOPHEN
     Indication: Premedication

REACTIONS (11)
  - Skin cancer [Recovered/Resolved]
  - Neuropathy peripheral [Not Recovered/Not Resolved]
  - Productive cough [Recovering/Resolving]
  - Sinus congestion [Recovering/Resolving]
  - Dry mouth [Not Recovered/Not Resolved]
  - Ageusia [Not Recovered/Not Resolved]
  - Pyrexia [Recovered/Resolved]
  - Bacterial test positive [Recovering/Resolving]
  - Rash pruritic [Recovering/Resolving]
  - Cold sweat [Unknown]
  - Off label use [Unknown]

NARRATIVE: CASE EVENT DATE: 20240101
